APPROVED DRUG PRODUCT: DRONABINOL
Active Ingredient: DRONABINOL
Strength: 2.5MG
Dosage Form/Route: CAPSULE;ORAL
Application: A078292 | Product #001
Applicant: SVC PHARMA LP
Approved: Jun 27, 2008 | RLD: No | RS: No | Type: DISCN